FAERS Safety Report 14259841 (Version 2)
Quarter: 2018Q1

REPORT INFORMATION
  Report Type: Report from Study
  Country: AR (occurrence: AR)
  Receive Date: 20171207
  Receipt Date: 20180108
  Transmission Date: 20180508
  Serious: Yes (Death, Hospitalization, Other)
  Sender: FDA-Public Use
  Company Number: PHHY2017AR180898

PATIENT
  Age: 75 Year
  Sex: Male

DRUGS (4)
  1. CARVEDILOL. [Concomitant]
     Active Substance: CARVEDILOL
     Indication: PRODUCT USED FOR UNKNOWN INDICATION
     Route: 065
  2. ATORVASTATIN [Concomitant]
     Active Substance: ATORVASTATIN
     Indication: PRODUCT USED FOR UNKNOWN INDICATION
     Route: 065
  3. ULTIBRO BREEZHALER [Suspect]
     Active Substance: GLYCOPYRRONIUM\INDACATEROL
     Indication: PRODUCT USED FOR UNKNOWN INDICATION
     Dosage: 1 DF, QD (IN MORNING), ABOUT 4 YEARS AGO
     Route: 065
     Dates: end: 201709
  4. EXFORGE [Suspect]
     Active Substance: AMLODIPINE BESYLATE\VALSARTAN
     Indication: HYPERTENSION
     Dosage: 1 DF, QD (STARTED 2 YEARS AGO)
     Route: 065

REACTIONS (11)
  - Renal failure [Unknown]
  - Type 2 diabetes mellitus [Unknown]
  - Single functional kidney [Unknown]
  - Pneumonia [Unknown]
  - Infection [Unknown]
  - Gait inability [Unknown]
  - Renal neoplasm [Unknown]
  - Endocarditis [Fatal]
  - Chronic obstructive pulmonary disease [Unknown]
  - Cardiac valve disease [Unknown]
  - Pain [Unknown]

NARRATIVE: CASE EVENT DATE: 2017
